FAERS Safety Report 8343819 (Version 3)
Quarter: 2015Q4

REPORT INFORMATION
  Report Type: Spontaneous
  Country: FR (occurrence: FR)
  Receive Date: 20120119
  Receipt Date: 20151230
  Transmission Date: 20160305
  Serious: Yes (Hospitalization)
  Sender: FDA-Public Use
  Company Number: FR-PFIZER INC-2012011543

PATIENT
  Age: 87 Year
  Sex: Female

DRUGS (8)
  1. CLAFORAN [Suspect]
     Active Substance: CEFOTAXIME SODIUM
     Dosage: 12 G, 1X/DAY
     Route: 042
     Dates: start: 20111021, end: 20111024
  2. TAREG [Concomitant]
     Active Substance: VALSARTAN
     Indication: HYPERTENSION
     Dosage: UNK
  3. ROCEPHINE [Concomitant]
     Active Substance: CEFTRIAXONE SODIUM
     Dosage: UNK
     Route: 042
     Dates: start: 20111017, end: 20111018
  4. CLAMOXYL [Concomitant]
     Active Substance: AMOXICILLIN\CLAVULANIC ACID
     Indication: ENDOCARDITIS
     Dosage: 3 G, 1X/DAY
     Dates: start: 20111018, end: 20111018
  5. CLAMOXYL [Concomitant]
     Active Substance: AMOXICILLIN\CLAVULANIC ACID
     Dosage: 12 G, 1X/DAY
     Route: 042
     Dates: start: 20111019, end: 20111021
  6. DALACINE [Suspect]
     Active Substance: CLINDAMYCIN HYDROCHLORIDE
     Dosage: 1800 MG, 1X/DAY
     Route: 042
     Dates: start: 20111017, end: 20111024
  7. GENTALLINE [Concomitant]
     Active Substance: GENTAMICIN SULFATE
     Dosage: UNK
     Dates: start: 20111019, end: 20111021
  8. RIFADINE [Suspect]
     Active Substance: RIFAMPIN
     Dosage: 1200 MG, 1X/DAY
     Route: 042
     Dates: start: 20111021, end: 20111024

REACTIONS (2)
  - Rash [Recovered/Resolved]
  - Eosinophilia [Recovered/Resolved]

NARRATIVE: CASE EVENT DATE: 20111023
